FAERS Safety Report 18179831 (Version 1)
Quarter: 2020Q3

REPORT INFORMATION
  Report Type: Spontaneous
  Country: DE (occurrence: DE)
  Receive Date: 20200821
  Receipt Date: 20200821
  Transmission Date: 20201103
  Serious: Yes (Hospitalization, Other)
  Sender: FDA-Public Use
  Company Number: DE-SCIEGEN-2020SCILIT00226

PATIENT
  Age: 21 Year
  Sex: Male
  Weight: 56 kg

DRUGS (6)
  1. METHYLENEDIOXYMETAMFETAMINE [Suspect]
     Active Substance: MIDOMAFETAMINE
     Indication: DRUG ABUSE
     Route: 065
  2. PREGABALIN CAPSULES [Suspect]
     Active Substance: PREGABALIN
     Indication: DRUG ABUSE
     Route: 065
  3. CLONAZEPAM. [Suspect]
     Active Substance: CLONAZEPAM
     Indication: DRUG ABUSE
     Route: 065
  4. ALBUMIN [Interacting]
     Active Substance: ALBUMIN HUMAN
     Indication: PRODUCT USED FOR UNKNOWN INDICATION
     Route: 065
  5. VASOPRESSOR [Interacting]
     Active Substance: UNSPECIFIED INGREDIENT
     Indication: PRODUCT USED FOR UNKNOWN INDICATION
     Route: 065
  6. PARACETAMOL [Interacting]
     Active Substance: ACETAMINOPHEN
     Indication: BODY TEMPERATURE
     Route: 065

REACTIONS (14)
  - Rhabdomyolysis [Recovered/Resolved]
  - Hyperthermia [Unknown]
  - Nervous system disorder [Recovered/Resolved]
  - Hyperpyrexia [Recovered/Resolved]
  - Renal failure [Recovered/Resolved]
  - Dehydration [Unknown]
  - Hypoglycaemia [Recovered/Resolved]
  - Gastrointestinal haemorrhage [Unknown]
  - Generalised tonic-clonic seizure [Recovered/Resolved]
  - Intra-abdominal haematoma [Unknown]
  - Mydriasis [Recovered/Resolved]
  - Hepatic failure [Recovered/Resolved]
  - Tachycardia [Unknown]
  - Coagulopathy [Unknown]
